FAERS Safety Report 9928916 (Version 2)
Quarter: 2014Q1

REPORT INFORMATION
  Report Type: Report from Study
  Country: PT (occurrence: PT)
  Receive Date: 20140227
  Receipt Date: 20140227
  Transmission Date: 20141002
  Serious: No
  Sender: FDA-Public Use
  Company Number: PHHY2013PT120305

PATIENT
  Age: 24 Year
  Sex: Female

DRUGS (2)
  1. EXTAVIA [Suspect]
     Indication: ACUTE DISSEMINATED ENCEPHALOMYELITIS
     Dosage: 250 UG, QOD
     Route: 058
     Dates: start: 20120416, end: 20131205
  2. EXTAVIA [Suspect]
     Indication: OFF LABEL USE

REACTIONS (1)
  - Injection site haematoma [Not Recovered/Not Resolved]
